FAERS Safety Report 6170655-2 (Version None)
Quarter: 2009Q2

REPORT INFORMATION
  Report Type: 
  Country: None (occurrence: None)
  Receive Date: 20090428
  Receipt Date: 20090420
  Transmission Date: 20091009
  Serious: Yes (Hospitalization, Other)
  Sender: FDA-Public Use
  Company Number: US-ABBOTT-09P-163-0567642-00

PATIENT
  Sex: Male
  Weight: 83.99 kg

DRUGS (16)
  1. HUMIRA [Suspect]
     Indication: CROHN'S DISEASE
     Dosage: LOADING DOSE
     Route: 058
     Dates: start: 20090327, end: 20090410
  2. HUMIRA [Suspect]
     Dosage: LOADING DOSE
     Route: 058
     Dates: start: 20090410, end: 20090410
  3. HUMIRA [Suspect]
  4. OMEPRAZOLE [Concomitant]
     Indication: CROHN'S DISEASE
  5. UROXATAL [Concomitant]
     Indication: PROSTATOMEGALY
  6. NITROGLYCERIN [Concomitant]
     Indication: CHEST PAIN
     Route: 060
  7. ALBUTEROL [Concomitant]
     Indication: CHRONIC OBSTRUCTIVE PULMONARY DISEASE
     Dosage: 1 PUFF TWICE A DAY
     Route: 055
  8. AMIODARONE [Concomitant]
     Indication: CARDIAC OPERATION
  9. ASPIRIN [Concomitant]
     Indication: CORONARY ARTERIAL STENT INSERTION
  10. ATENOLOL [Concomitant]
     Indication: CARDIAC OPERATION
     Dosage: 1/2 - 50 MILLIGRAM TABLET DAILY
  11. CLOPIDOGREL [Concomitant]
     Indication: CORONARY ARTERIAL STENT INSERTION
  12. ESCITALOPRAM [Concomitant]
     Indication: DRUG USE FOR UNKNOWN INDICATION
     Dosage: 1/2 - 20 MILLIGRAM TABLET DAILY
  13. GEMFIBROZIL [Concomitant]
     Indication: BLOOD TRIGLYCERIDES INCREASED
  14. ISOSORBIDE DINITRATE [Concomitant]
     Indication: CARDIAC OPERATION
     Dosage: 1/2 - 60 MILLIGRAMS TABLET DAILY
  15. LORATAIN [Concomitant]
     Indication: HYPERSENSITIVITY
  16. MULTI-VITAMIN [Concomitant]
     Indication: VITAMIN SUPPLEMENTATION

REACTIONS (4)
  - ABDOMINAL PAIN UPPER [None]
  - FATIGUE [None]
  - INTESTINAL OBSTRUCTION [None]
  - NAUSEA [None]
